FAERS Safety Report 9744655 (Version 2)
Quarter: 2014Q1

REPORT INFORMATION
  Report Type: Spontaneous
  Country: FR (occurrence: FR)
  Receive Date: 20131210
  Receipt Date: 20140123
  Transmission Date: 20141002
  Serious: Yes (Hospitalization, Other)
  Sender: FDA-Public Use
  Company Number: FR-ASTRAZENECA-2013SE89304

PATIENT
  Age: 83 Year
  Sex: Male

DRUGS (8)
  1. INEXIUM [Suspect]
     Dosage: UNKNOWN DOSE DAILY
     Route: 048
  2. OLMETEC [Suspect]
     Route: 048
     Dates: start: 20111025, end: 201304
  3. KARDEGIC [Concomitant]
  4. ANAFRANIL [Concomitant]
  5. TRANXENE [Concomitant]
  6. TANGANIL [Concomitant]
  7. NEULEPTIL [Concomitant]
  8. VOLTARENE [Concomitant]

REACTIONS (8)
  - Intestinal ischaemia [Unknown]
  - Inguinal hernia [Unknown]
  - Volvulus of small bowel [Unknown]
  - Crohn^s disease [Unknown]
  - Colitis microscopic [Recovered/Resolved]
  - Weight decreased [Recovered/Resolved]
  - Coeliac disease [Unknown]
  - Diarrhoea [Recovering/Resolving]
